FAERS Safety Report 15300013 (Version 1)
Quarter: 2018Q3

REPORT INFORMATION
  Report Type: Spontaneous
  Country: US (occurrence: US)
  Receive Date: 20180808
  Receipt Date: 20180808
  Transmission Date: 20181010
  Serious: No
  Sender: FDA-Public Use
  Company Number: None

PATIENT
  Age: 65 Year
  Sex: Female
  Weight: 80.29 kg

DRUGS (1)
  1. VALSARTAN 160MG [Suspect]
     Active Substance: VALSARTAN
     Indication: HYPERTENSION
     Route: 048

REACTIONS (4)
  - Asthenia [None]
  - Pain [None]
  - Fatigue [None]
  - Headache [None]

NARRATIVE: CASE EVENT DATE: 20180728
